FAERS Safety Report 5244619-7 (Version None)
Quarter: 2007Q1

REPORT INFORMATION
  Report Type: 
  Country: None (occurrence: None)
  Receive Date: 20070222
  Receipt Date: 20070214
  Transmission Date: 20070707
  Serious: Yes (Other)
  Sender: FDA-Public Use
  Company Number: AR-SHR-AR-2006-032096

PATIENT
  Age: 45 Year
  Sex: Female
  Weight: 76 kg

DRUGS (8)
  1. BETASERON [Suspect]
     Indication: RELAPSING-REMITTING MULTIPLE SCLEROSIS
     Dosage: UNK, EVERY 2D
     Route: 058
     Dates: start: 20040714, end: 20061004
  2. CLONAZEPAM [Concomitant]
     Indication: ANXIETY
     Dosage: .5 MG, 1X/DAY
     Route: 048
     Dates: start: 20050214
  3. IBUPROFEN [Concomitant]
     Indication: PROPHYLAXIS
     Dosage: 400 MG, EVERY 2D
     Route: 048
     Dates: start: 20040714, end: 20041010
  4. METHYLPREDNISOLONE 16MG TAB [Concomitant]
     Indication: PARAESTHESIA
     Dosage: 1 G, 1 DOSE
     Route: 042
     Dates: start: 20050901, end: 20050901
  5. METHYLPREDNISOLONE 16MG TAB [Concomitant]
     Indication: MULTIPLE SCLEROSIS RELAPSE
     Dosage: 1 G, DAILY
     Route: 042
     Dates: start: 20060815, end: 20060815
  6. METHYLPREDNISOLONE 16MG TAB [Concomitant]
     Dosage: 1 G, DAILY
     Route: 042
     Dates: start: 20060817, end: 20060817
  7. METHYLPREDNISOLONE 16MG TAB [Concomitant]
     Dosage: 1 G, DAILY
     Route: 042
     Dates: start: 20060819, end: 20060819
  8. COPAXONE [Suspect]

REACTIONS (3)
  - ALANINE AMINOTRANSFERASE INCREASED [None]
  - ASPARTATE AMINOTRANSFERASE INCREASED [None]
  - BILIRUBIN CONJUGATED INCREASED [None]
